FAERS Safety Report 16849955 (Version 1)
Quarter: 2019Q4

REPORT INFORMATION
  Report Type: Spontaneous
  Country: US (occurrence: US)
  Receive Date: 20190925
  Receipt Date: 20190925
  Transmission Date: 20200122
  Serious: No
  Sender: FDA-Public Use
  Company Number: None

PATIENT
  Age: 70 Year
  Sex: Male
  Weight: 83.25 kg

DRUGS (5)
  1. VIT D [Concomitant]
     Active Substance: VITAMIN D NOS
  2. LOSARTAN. [Concomitant]
     Active Substance: LOSARTAN
  3. CREST PRO-HEALTH RINSE [Suspect]
     Active Substance: CETYLPYRIDINIUM CHLORIDE
     Indication: GINGIVITIS
     Dosage: ?          OTHER STRENGTH:.1%;QUANTITY:1 CAP FULL;?
     Route: 048
     Dates: start: 20190802, end: 20190806
  4. ATENOLOL. [Concomitant]
     Active Substance: ATENOLOL
  5. CREST PRO-HEALTH CLINICAL GUM PROTECTION [Suspect]
     Active Substance: STANNOUS FLUORIDE

REACTIONS (5)
  - Taste disorder [None]
  - Tooth discolouration [None]
  - Product complaint [None]
  - Stomatitis [None]
  - Swelling face [None]

NARRATIVE: CASE EVENT DATE: 20190807
